FAERS Safety Report 7276764-9 (Version None)
Quarter: 2011Q1

REPORT INFORMATION
  Report Type: 
  Country: None (occurrence: None)
  Receive Date: 20110206
  Receipt Date: 20110112
  Transmission Date: 20110831
  Serious: No
  Sender: FDA-Public Use
  Company Number: US-BAYER-2011-004449

PATIENT
  Sex: Female
  Weight: 82 kg

DRUGS (5)
  1. BLACK COHOSH [Concomitant]
  2. ALEVE (CAPLET) [Suspect]
     Indication: HEADACHE
     Dosage: PACKAGE SIZE - 50S
     Dates: start: 20110111
  3. ESTRADIOL [Concomitant]
  4. NEXIUM [Concomitant]
  5. UNCODEABLE ^UNCLASSIFIABLE^ [Concomitant]
     Indication: HORMONE REPLACEMENT THERAPY

REACTIONS (6)
  - PRURITUS [None]
  - OCULAR HYPERAEMIA [None]
  - EYE SWELLING [None]
  - HYPERSENSITIVITY [None]
  - EYE PRURITUS [None]
  - URTICARIA [None]
